FAERS Safety Report 9516833 (Version 1)
Quarter: 2013Q3

REPORT INFORMATION
  Report Type: Spontaneous
  Country: US (occurrence: US)
  Receive Date: 20130911
  Receipt Date: 20130911
  Transmission Date: 20140515
  Serious: Yes (Other)
  Sender: FDA-Public Use
  Company Number: US-ABBOTT-13P-163-1142624-00

PATIENT
  Sex: Female
  Weight: 86.26 kg

DRUGS (10)
  1. HUMIRA [Suspect]
     Indication: PSORIATIC ARTHROPATHY
     Dates: start: 200909
  2. METHOTREXATE [Suspect]
     Indication: PSORIATIC ARTHROPATHY
     Dates: end: 2012
  3. NEXIUM [Suspect]
     Indication: PRODUCT USED FOR UNKNOWN INDICATION
     Dates: end: 201301
  4. FLEXERIL [Concomitant]
     Indication: PAIN
  5. RECLAST [Concomitant]
     Indication: OSTEOPOROSIS
  6. ZETIA [Concomitant]
     Indication: BLOOD CHOLESTEROL INCREASED
  7. CRESTOR [Concomitant]
     Indication: BLOOD CHOLESTEROL INCREASED
  8. TRIAMTERENE [Concomitant]
     Indication: HYPERTENSION
  9. AZUR [Concomitant]
     Indication: HYPERTENSION
  10. LOVAZA [Concomitant]
     Indication: SUPPLEMENTATION THERAPY

REACTIONS (12)
  - Trigger finger [Recovered/Resolved]
  - Psoriatic arthropathy [Recovered/Resolved]
  - Injection site pain [Recovered/Resolved]
  - Stomatitis [Recovered/Resolved]
  - Tooth infection [Not Recovered/Not Resolved]
  - Sjogren^s syndrome [Recovered/Resolved]
  - Psoriatic arthropathy [Recovered/Resolved]
  - Pain in jaw [Recovered/Resolved]
  - Dry eye [Recovered/Resolved]
  - Tooth fracture [Not Recovered/Not Resolved]
  - Nausea [Recovered/Resolved]
  - Influenza like illness [Recovered/Resolved]
